FAERS Safety Report 24283789 (Version 3)
Quarter: 2024Q3

REPORT INFORMATION
  Report Type: Report from Study
  Country: GB (occurrence: GB)
  Receive Date: 20240905
  Receipt Date: 20240916
  Transmission Date: 20241016
  Serious: Yes (Other)
  Sender: ABBVIE
  Company Number: GB-ABBVIE-5904784

PATIENT
  Age: 20 Year
  Sex: Female

DRUGS (1)
  1. SKYRIZI [Suspect]
     Active Substance: RISANKIZUMAB-RZAA
     Indication: Crohn^s disease
     Dosage: FORM STRENGTH: 360 MILLIGRAM. LAST ADMIN DATE 2024
     Route: 058
     Dates: start: 20240628

REACTIONS (2)
  - Fistula [Unknown]
  - Wound [Unknown]

NARRATIVE: CASE EVENT DATE: 20240101
